FAERS Safety Report 4384402-8 (Version None)
Quarter: 2004Q2

REPORT INFORMATION
  Report Type: 
  Country: None (occurrence: None)
  Receive Date: 20040621
  Receipt Date: 20040607
  Transmission Date: 20050107
  Serious: Yes (Hospitalization)
  Sender: FDA-Public Use
  Company Number: 2004218130DE

PATIENT
  Age: 59 Year
  Sex: Female
  Weight: 63 kg

DRUGS (3)
  1. FARMORUBICIN(EPIRUBICIN HYDROCHLORIDE) SOLUTION, STERILE [Suspect]
     Indication: BREAST CANCER FEMALE
     Dosage: 103 MG, UNK, IV
     Route: 042
  2. FLUOROURACIL [Suspect]
     Indication: BREAST CANCER FEMALE
     Dosage: 860 MG, UNK, IV
     Route: 042
  3. CYCLOPHOSPHAMIDE [Suspect]
     Indication: BREAST CANCER FEMALE
     Dosage: 150 MG, UNK, ORAL
     Route: 048

REACTIONS (3)
  - JUGULAR VEIN THROMBOSIS [None]
  - PAIN [None]
  - SUBCLAVIAN VEIN THROMBOSIS [None]
